FAERS Safety Report 14979434 (Version 1)
Quarter: 2018Q2

REPORT INFORMATION
  Report Type: Spontaneous
  Country: DE (occurrence: DE)
  Receive Date: 20180606
  Receipt Date: 20180606
  Transmission Date: 20180711
  Serious: Yes (Hospitalization)
  Sender: FDA-Public Use
  Company Number: DE-PFIZER INC-2018227863

PATIENT
  Age: 78 Year
  Sex: Male
  Weight: 80 kg

DRUGS (9)
  1. GABAPENTIN. [Suspect]
     Active Substance: GABAPENTIN
     Dosage: 800 MG, 3X/DAY (800 MG, 1-1-1-0)
  2. TILIDINE [Suspect]
     Active Substance: TILIDINE
     Dosage: 100|8 MG, AS NEEDED
  3. SIMVASTATIN. [Concomitant]
     Active Substance: SIMVASTATIN
     Dosage: 40 MG, 1X/DAY (40 MG, 0-0-1-0)
  4. CLOPIDOGREL [Concomitant]
     Active Substance: CLOPIDOGREL BISULFATE
     Dosage: 75 MG, 1X/DAY (75 MG, 1-0-0-0)
  5. ASS 50 [Concomitant]
     Dosage: 50 MG, 1X/DAY (50 MG, 0-1-0-0)
  6. LEVOTHYROXIN [Concomitant]
     Active Substance: LEVOTHYROXINE
     Dosage: 75 UG, 1X/DAY (75 ?G, 1-0-0-0)
     Route: 065
  7. EBRANTIL 30 MG [Concomitant]
     Dosage: 30 MG, 3X/DAY  (1-1-1-0)
  8. PANTOPRAZOL [Concomitant]
     Active Substance: PANTOPRAZOLE SODIUM
     Dosage: 40 MG, 1X/DAY (40 MG, 0-0-1-0)
     Route: 065
  9. VALSARTAN. [Concomitant]
     Active Substance: VALSARTAN
     Dosage: 160 MG, 1X/DAY (160 MG, 1-0-0-0)
     Route: 065

REACTIONS (6)
  - General physical health deterioration [Unknown]
  - Visual impairment [Unknown]
  - Medication monitoring error [Unknown]
  - Syncope [Unknown]
  - Drug prescribing error [Unknown]
  - Gamma-glutamyltransferase increased [Unknown]

NARRATIVE: CASE EVENT DATE: 20160421
